FAERS Safety Report 8888003 (Version 1)
Quarter: 2012Q4

REPORT INFORMATION
  Report Type: Spontaneous
  Country: US (occurrence: None)
  Receive Date: 20121101
  Receipt Date: 20121101
  Transmission Date: 20130627
  Serious: No
  Sender: FDA-Public Use
  Company Number: None

PATIENT
  Age: 60 Year
  Sex: Male
  Weight: 52.6 kg

DRUGS (1)
  1. CILASTATIN/IMIPENEM [Suspect]
     Indication: SEIZURE
     Dosage: 500 MG BID IV
     Route: 042
     Dates: start: 20121005, end: 20121005

REACTIONS (1)
  - Convulsion [None]
